FAERS Safety Report 16280705 (Version 1)
Quarter: 2019Q2

REPORT INFORMATION
  Report Type: Spontaneous
  Country: US (occurrence: US)
  Receive Date: 20190507
  Receipt Date: 20190507
  Transmission Date: 20190711
  Serious: Yes (Life-Threatening, Hospitalization, Other)
  Sender: FDA-Public Use
  Company Number: US-ACCORD-125960

PATIENT
  Age: 66 Year
  Sex: Male

DRUGS (3)
  1. PREDNISONE. [Suspect]
     Active Substance: PREDNISONE
     Indication: IMMUNOSUPPRESSANT DRUG THERAPY
  2. SIROLIMUS. [Suspect]
     Active Substance: SIROLIMUS
     Indication: IMMUNOSUPPRESSANT DRUG THERAPY
  3. MYCOPHENOLIC ACID. [Suspect]
     Active Substance: MYCOPHENOLIC ACID
     Indication: IMMUNOSUPPRESSANT DRUG THERAPY

REACTIONS (7)
  - Ophthalmic herpes zoster [Recovered/Resolved]
  - Unresponsive to stimuli [Unknown]
  - Herpes zoster meningoencephalitis [Recovered/Resolved]
  - Necrotising retinitis [Recovered/Resolved]
  - Mental status changes [Recovering/Resolving]
  - Varicella zoster virus infection [Recovered/Resolved]
  - Agitation [Recovering/Resolving]
